FAERS Safety Report 16394202 (Version 1)
Quarter: 2019Q2

REPORT INFORMATION
  Report Type: Spontaneous
  Country: US (occurrence: US)
  Receive Date: 20190430
  Receipt Date: 20190430
  Transmission Date: 20190711
  Serious: No
  Sender: FDA-Public Use
  Company Number: None

PATIENT
  Age: 72 Year
  Sex: Female

DRUGS (3)
  1. EQUETRO [Concomitant]
     Active Substance: CARBAMAZEPINE
  2. LATUDA ATORVASTATIN [Concomitant]
  3. AUSTEDO [Suspect]
     Active Substance: DEUTETRABENAZINE
     Dates: start: 201901, end: 201904

REACTIONS (1)
  - Nightmare [None]

NARRATIVE: CASE EVENT DATE: 20190418
